FAERS Safety Report 6773533-0 (Version None)
Quarter: 2010Q2

REPORT INFORMATION
  Report Type: 
  Country: None (occurrence: None)
  Receive Date: 20100616
  Receipt Date: 20100608
  Transmission Date: 20101027
  Serious: Yes (Hospitalization, Other)
  Sender: FDA-Public Use
  Company Number: US-AMGEN-KDL417228

PATIENT
  Age: 79 Year
  Sex: Male
  Weight: 104.4 kg

DRUGS (5)
  1. PROCRIT [Suspect]
     Indication: RENAL FAILURE CHRONIC
     Route: 058
  2. INSULIN [Concomitant]
  3. PLAVIX [Concomitant]
     Dates: end: 20100601
  4. LEVOTHYROXINE SODIUM [Concomitant]
  5. UNSPECIFIED ANTIHYPERTENSIVE AGENT [Concomitant]

REACTIONS (5)
  - AORTIC ANEURYSM [None]
  - HAEMATOCRIT DECREASED [None]
  - REFUSAL OF TREATMENT BY PATIENT [None]
  - SKIN ULCER [None]
  - TENDON RUPTURE [None]
